FAERS Safety Report 23702697 (Version 3)
Quarter: 2025Q2

REPORT INFORMATION
  Report Type: Report from Study
  Country: US (occurrence: US)
  Receive Date: 20240403
  Receipt Date: 20250515
  Transmission Date: 20250716
  Serious: Yes (Hospitalization, Other)
  Sender: TAKEDA
  Company Number: US-TAKEDA-2023TUS097395

PATIENT
  Age: 75 Year
  Sex: Female
  Weight: 56.689 kg

DRUGS (18)
  1. HUMAN IMMUNOGLOBULIN G [Suspect]
     Active Substance: HUMAN IMMUNOGLOBULIN G
     Indication: IgG deficiency
     Dosage: 26 GRAM, Q4WEEKS
     Dates: start: 20170509
  2. ALDACTONE [Concomitant]
     Active Substance: SPIRONOLACTONE
  3. ATORVASTATIN CALCIUM [Concomitant]
     Active Substance: ATORVASTATIN CALCIUM
  4. OXYCODONE AND ACETAMINOPHEN [Concomitant]
     Active Substance: ACETAMINOPHEN\OXYCODONE HYDROCHLORIDE
  5. FLUTICASONE PROPIONATE [Concomitant]
     Active Substance: FLUTICASONE PROPIONATE
  6. GABAPENTIN [Concomitant]
     Active Substance: GABAPENTIN
  7. CELEBREX [Concomitant]
     Active Substance: CELECOXIB
  8. SINGULAIR [Concomitant]
     Active Substance: MONTELUKAST SODIUM
  9. MIRALAX [Concomitant]
     Active Substance: POLYETHYLENE GLYCOL 3350
  10. ASPIRIN [Concomitant]
     Active Substance: ASPIRIN
  11. ADVAIR HFA [Concomitant]
     Active Substance: FLUTICASONE PROPIONATE\SALMETEROL XINAFOATE
  12. FOSAMAX [Concomitant]
     Active Substance: ALENDRONATE SODIUM
  13. ACETAMINOPHEN [Concomitant]
     Active Substance: ACETAMINOPHEN
  14. EPINEPHRINE [Concomitant]
     Active Substance: EPINEPHRINE
  15. DIPHENHYDRAMINE HYDROCHLORIDE [Concomitant]
     Active Substance: DIPHENHYDRAMINE HYDROCHLORIDE
  16. SODIUM CHLORIDE [Concomitant]
     Active Substance: SODIUM CHLORIDE
  17. ELIQUIS [Concomitant]
     Active Substance: APIXABAN
  18. ZOLPIDEM TARTRATE [Concomitant]
     Active Substance: ZOLPIDEM TARTRATE

REACTIONS (8)
  - Lumbar vertebral fracture [Unknown]
  - Fall [Unknown]
  - Head injury [Unknown]
  - Femur fracture [Unknown]
  - Limb injury [Unknown]
  - Osteoporosis [Unknown]
  - Product dose omission issue [Unknown]
  - Oedema peripheral [Unknown]

NARRATIVE: CASE EVENT DATE: 20230901
